FAERS Safety Report 7357941-5 (Version None)
Quarter: 2011Q1

REPORT INFORMATION
  Report Type: 
  Country: None (occurrence: None)
  Receive Date: 20110317
  Receipt Date: 20110315
  Transmission Date: 20110831
  Serious: Yes (Life-Threatening)
  Sender: FDA-Public Use
  Company Number: US-B.I. PHARMACEUTICALS,INC./RIDGEFIELD-2011-BP-08006BP

PATIENT

DRUGS (1)
  1. PRADAXA [Suspect]
     Dates: start: 20101101

REACTIONS (1)
  - MYOCARDIAL INFARCTION [None]
